FAERS Safety Report 18986512 (Version 1)
Quarter: 2021Q1

REPORT INFORMATION
  Report Type: Spontaneous
  Country: US (occurrence: US)
  Receive Date: 20210308
  Receipt Date: 20210308
  Transmission Date: 20210420
  Serious: Yes (Hospitalization)
  Sender: FDA-Public Use
  Company Number: None

PATIENT
  Age: 69 Year
  Sex: Male
  Weight: 88.9 kg

DRUGS (1)
  1. LISINOPRIL (LISINOPRIL 40MG TAB) [Suspect]
     Active Substance: LISINOPRIL
     Indication: HYPERTENSION
     Route: 048
     Dates: start: 19980403, end: 20210222

REACTIONS (6)
  - Oral mucosal discolouration [None]
  - Nasal congestion [None]
  - Epistaxis [None]
  - Angioedema [None]
  - Productive cough [None]
  - Haemoptysis [None]

NARRATIVE: CASE EVENT DATE: 20210222
